FAERS Safety Report 22078312 (Version 1)
Quarter: 2023Q1

REPORT INFORMATION
  Report Type: Spontaneous
  Country: SE (occurrence: SE)
  Receive Date: 20230309
  Receipt Date: 20230309
  Transmission Date: 20230418
  Serious: Yes (Other)
  Sender: FDA-Public Use
  Company Number: None

PATIENT
  Age: 74 Year
  Sex: Female
  Weight: 80 kg

DRUGS (5)
  1. SERTRALINE [Suspect]
     Active Substance: SERTRALINE HYDROCHLORIDE
     Indication: Product used for unknown indication
     Dosage: UNK
     Route: 065
     Dates: start: 202111
  2. DULOXETINE HYDROCHLORIDE [Suspect]
     Active Substance: DULOXETINE HYDROCHLORIDE
     Indication: Depressed mood
     Dosage: 60 MILLIGRAM, QD EFFERVESCENT CAPSULE, HARD
     Route: 065
     Dates: start: 20220722
  3. BISOPROLOL [Concomitant]
     Active Substance: BISOPROLOL
     Dosage: UNK
     Route: 065
  4. FELODIPINE [Concomitant]
     Active Substance: FELODIPINE
     Dosage: UNK
     Route: 065
  5. KANDROZID [Concomitant]
     Dosage: UNK
     Route: 065

REACTIONS (5)
  - Eczema [Recovered/Resolved]
  - Renal colic [Recovered/Resolved]
  - Haemoglobin decreased [Recovered/Resolved]
  - Anaemia [Recovered/Resolved]
  - Blood urine present [Not Recovered/Not Resolved]

NARRATIVE: CASE EVENT DATE: 20211101
